FAERS Safety Report 8282813-1 (Version None)
Quarter: 2012Q2

REPORT INFORMATION
  Report Type: 
  Country: None (occurrence: None)
  Receive Date: 20120413
  Receipt Date: 20120330
  Transmission Date: 20120825
  Serious: Yes (Death, Life-Threatening, Other)
  Sender: FDA-Public Use
  Company Number: JP-ROCHE-1027519

PATIENT
  Sex: Female
  Weight: 47 kg

DRUGS (5)
  1. HERCEPTIN [Suspect]
     Indication: BREAST CANCER
     Route: 041
     Dates: start: 20110928, end: 20110928
  2. DECADRON [Concomitant]
     Indication: PROPHYLAXIS OF NAUSEA AND VOMITING
     Dosage: COOL
     Route: 048
     Dates: start: 20110929, end: 20111201
  3. TAXOTERE [Suspect]
     Indication: BREAST CANCER
     Route: 041
     Dates: start: 20110928, end: 20111129
  4. NIZATIDINE [Concomitant]
     Indication: PROPHYLAXIS OF NAUSEA AND VOMITING
     Dosage: COOL
     Route: 048
     Dates: start: 20110928, end: 20111201
  5. HERCEPTIN [Suspect]
     Route: 041
     Dates: start: 20111018, end: 20111129

REACTIONS (2)
  - INTERSTITIAL LUNG DISEASE [None]
  - PNEUMOTHORAX [None]
